FAERS Safety Report 7669219-0 (Version None)
Quarter: 2011Q3

REPORT INFORMATION
  Report Type: 
  Country: None (occurrence: None)
  Receive Date: 20110808
  Receipt Date: 20110726
  Transmission Date: 20111222
  Serious: Yes (Hospitalization, Other)
  Sender: FDA-Public Use
  Company Number: PHHY2011BR68694

PATIENT
  Sex: Female

DRUGS (4)
  1. BETAMETHASONE [Concomitant]
     Dosage: 10 ML EVERY 8 HOURS
  2. METHYLDOPA [Concomitant]
     Indication: HYPERTENSION
     Dosage: 2 DF, UNK
     Route: 048
  3. FORMOTEROL FUMARATE [Suspect]
     Indication: COUGH
     Dosage: TWO INHALATIONS WITH EACH ACTIVE PRINCIPLE PER DAY
  4. FORMOTEROL FUMARATE [Suspect]
     Dosage: TWO INHALATIONS WITH EACH ACTIVE PRINCIPLE PER DAY
     Dates: start: 20110727

REACTIONS (5)
  - DIARRHOEA [None]
  - METASTASES TO GASTROINTESTINAL TRACT [None]
  - RENAL CANCER [None]
  - DIZZINESS [None]
  - COUGH [None]
